FAERS Safety Report 4722846-2 (Version None)
Quarter: 2005Q3

REPORT INFORMATION
  Report Type: 
  Country: None (occurrence: None)
  Receive Date: 20050722
  Receipt Date: 20050621
  Transmission Date: 20060218
  Serious: Yes (Hospitalization)
  Sender: FDA-Public Use
  Company Number: JP-GLAXOSMITHKLINE-B0385499A

PATIENT
  Age: 78 Year
  Sex: Female

DRUGS (13)
  1. VALTREX [Suspect]
     Indication: HERPES ZOSTER
     Dosage: 1000MG THREE TIMES PER DAY
     Route: 048
     Dates: start: 20050613, end: 20050615
  2. NORVASC [Concomitant]
     Indication: HYPERTENSION
     Dosage: 2.5MG PER DAY
     Route: 048
  3. PREDNISOLONE [Concomitant]
     Indication: RHEUMATOID ARTHRITIS
     Dosage: 5MG PER DAY
     Route: 048
  4. TAKEPRON [Concomitant]
     Dosage: 15MG PER DAY
     Route: 048
  5. KLARICID [Concomitant]
     Indication: INTERSTITIAL LUNG DISEASE
     Dosage: 200MG PER DAY
     Route: 048
  6. MUCODYNE [Concomitant]
     Indication: INTERSTITIAL LUNG DISEASE
     Dosage: 1500MG PER DAY
     Route: 048
  7. DEPAS [Concomitant]
     Dosage: .5MG PER DAY
     Route: 048
  8. MAGLAX [Concomitant]
     Dosage: 500MG PER DAY
     Route: 048
  9. ALFAROL [Concomitant]
     Route: 048
  10. NOLVADEX [Concomitant]
     Indication: BREAST CANCER
     Dosage: 20MG PER DAY
     Route: 048
  11. LOXONIN [Concomitant]
     Indication: CANCER PAIN
     Route: 048
  12. ONEALFA [Concomitant]
     Indication: OSTEOPOROSIS
     Dosage: .5MCG PER DAY
     Route: 048
  13. ZOVIRAX [Concomitant]
     Indication: ENCEPHALITIS
     Dosage: 1000MG PER DAY
     Route: 042
     Dates: start: 20050618, end: 20050601

REACTIONS (6)
  - ABNORMAL BEHAVIOUR [None]
  - ENCEPHALITIS HERPES [None]
  - MICTURITION FREQUENCY DECREASED [None]
  - PSYCHIATRIC SYMPTOM [None]
  - RENAL IMPAIRMENT [None]
  - SPEECH DISORDER [None]
